FAERS Safety Report 8823399 (Version 2)
Quarter: 2013Q1

REPORT INFORMATION
  Report Type: Spontaneous
  Country: US (occurrence: US)
  Receive Date: 20121003
  Receipt Date: 20130122
  Transmission Date: 20140127
  Serious: No
  Sender: FDA-Public Use
  Company Number: US-009507513-1209USA005650

PATIENT
  Age: 57 Year
  Sex: Male
  Weight: 111.11 kg

DRUGS (9)
  1. PEG-INTRON [Suspect]
     Dosage: 120 MCG/0.5ML, QW
     Route: 058
  2. RIBAVIRIN [Suspect]
     Dosage: 200 MG, UNK
  3. VICTRELIS [Suspect]
     Dosage: 200 MG, QID
     Route: 048
  4. WELLBUTRIN TABLETS [Concomitant]
  5. LISINOPRIL [Concomitant]
  6. OMEPRAZOLE [Concomitant]
  7. RANITIDINE [Concomitant]
  8. HYDROCORTISONE [Concomitant]
  9. CELEXA [Concomitant]
     Dosage: 10 MG, UNK

REACTIONS (9)
  - Dysgeusia [Unknown]
  - Arthralgia [Unknown]
  - Blister [Unknown]
  - Libido decreased [Unknown]
  - Dyspnoea [Unknown]
  - Fatigue [Unknown]
  - Dizziness [Unknown]
  - Rash [Unknown]
  - Blister [Unknown]
